FAERS Safety Report 10045479 (Version 1)
Quarter: 2014Q1

REPORT INFORMATION
  Report Type: Report from Study
  Country: BR (occurrence: BR)
  Receive Date: 20140328
  Receipt Date: 20140328
  Transmission Date: 20141002
  Serious: Yes (Other)
  Sender: FDA-Public Use
  Company Number: PHHY2014BR034082

PATIENT
  Age: 78 Year
  Sex: Female
  Weight: 72 kg

DRUGS (8)
  1. GALVUS MET [Suspect]
     Indication: DIABETES MELLITUS
     Dosage: 2 DF, (850 MG MET/50 MG) DAILY
     Dates: end: 20140313
  2. METFORMIN [Suspect]
     Indication: DIABETES MELLITUS
     Dosage: 3 DF, DAILY
  3. INSULIN [Suspect]
     Indication: DIABETES MELLITUS
     Dosage: UNK UKN, UNK
  4. SIMVASTATIN [Concomitant]
     Indication: BLOOD CHOLESTEROL ABNORMAL
     Dosage: 1 DF, AT NIGHT
  5. VASODIPINA [Concomitant]
     Indication: NERVOUS SYSTEM DISORDER
     Dosage: 2 DF, DAILY
     Dates: start: 2009
  6. RIVASTIGMINE [Concomitant]
     Indication: DEMENTIA ALZHEIMER^S TYPE
     Dosage: 1 DF, DAILY
  7. CAPTOPRIL [Concomitant]
     Dosage: 25 UKN, UNK
  8. OXYGEN [Concomitant]
     Dosage: 30 MG, UNK

REACTIONS (3)
  - Urinary tract infection [Recovering/Resolving]
  - Pyrexia [Recovering/Resolving]
  - Malaise [Recovering/Resolving]
